FAERS Safety Report 11067898 (Version 1)
Quarter: 2015Q2

REPORT INFORMATION
  Report Type: Spontaneous
  Country: CA (occurrence: CA)
  Receive Date: 20150427
  Receipt Date: 20150427
  Transmission Date: 20150821
  Serious: Yes (Life-Threatening, Hospitalization, Other)
  Sender: FDA-Public Use
  Company Number: CA-JNJFOC-20150417528

PATIENT
  Age: 89 Year
  Sex: Male

DRUGS (1)
  1. XARELTO [Suspect]
     Active Substance: RIVAROXABAN
     Indication: PRODUCT USED FOR UNKNOWN INDICATION
     Route: 048

REACTIONS (5)
  - Epistaxis [Unknown]
  - Hypotension [Unknown]
  - Haemoglobin decreased [Unknown]
  - Haemorrhage [Unknown]
  - Packed red blood cell transfusion [Unknown]
